FAERS Safety Report 7472236-7 (Version None)
Quarter: 2011Q2

REPORT INFORMATION
  Report Type: 
  Country: None (occurrence: None)
  Receive Date: 20110502
  Receipt Date: 20110415
  Transmission Date: 20111010
  Serious: Yes (Hospitalization)
  Sender: FDA-Public Use
  Company Number: AUR-APL-2011-01296

PATIENT
  Age: 71 Year
  Sex: Female

DRUGS (1)
  1. MELOXICAM [Suspect]
     Indication: OSTEOARTHRITIS
     Dosage: ORAL
     Route: 048

REACTIONS (2)
  - CHOLELITHIASIS [None]
  - CHOLECYSTITIS ACUTE [None]
